FAERS Safety Report 6598730-9 (Version None)
Quarter: 2010Q1

REPORT INFORMATION
  Report Type: 
  Country: None (occurrence: None)
  Receive Date: 20100224
  Receipt Date: 20100211
  Transmission Date: 20100710
  Serious: Yes (Other)
  Sender: FDA-Public Use
  Company Number: AU-PFIZER INC-2010019213

PATIENT
  Sex: Female

DRUGS (1)
  1. ZOLOFT [Suspect]
     Dosage: 200 MG, UNK

REACTIONS (15)
  - AMNESIA [None]
  - DISTURBANCE IN ATTENTION [None]
  - DIZZINESS [None]
  - GLUCOSE TOLERANCE IMPAIRED [None]
  - HORMONE LEVEL ABNORMAL [None]
  - HYPERHIDROSIS [None]
  - HYPERTENSION [None]
  - HYPOTENSION [None]
  - INSOMNIA [None]
  - MIGRAINE [None]
  - MINERAL DEFICIENCY [None]
  - PALPITATIONS [None]
  - VERTIGO [None]
  - WEIGHT INCREASED [None]
  - WITHDRAWAL SYNDROME [None]
